FAERS Safety Report 22245075 (Version 3)
Quarter: 2023Q2

REPORT INFORMATION
  Report Type: Report from Study
  Country: CA (occurrence: CA)
  Receive Date: 20230424
  Receipt Date: 20230515
  Transmission Date: 20230721
  Serious: Yes (Hospitalization, Other)
  Sender: FDA-Public Use
  Company Number: CA-TAKEDA-2023TUS026185

PATIENT
  Age: 77 Year
  Sex: Female

DRUGS (15)
  1. VEDOLIZUMAB [Suspect]
     Active Substance: VEDOLIZUMAB
     Indication: Colitis ulcerative
     Dosage: 300 MILLIGRAM
     Route: 042
     Dates: start: 20230210
  2. VEDOLIZUMAB [Suspect]
     Active Substance: VEDOLIZUMAB
     Dosage: 300 MILLIGRAM
     Route: 042
     Dates: end: 20230324
  3. RABEPRAZOLE [Concomitant]
     Active Substance: RABEPRAZOLE
     Dosage: 20 MILLIGRAM
     Route: 048
  4. CALCIUM [Concomitant]
     Active Substance: CALCIUM
     Dosage: 650 MILLIGRAM
     Route: 048
  5. ASPIRIN [Concomitant]
     Active Substance: ASPIRIN
     Dosage: 81 MILLIGRAM
     Route: 048
  6. OMEGA 3 [Concomitant]
     Active Substance: CAPSAICIN
     Dosage: 900 MILLIGRAM
     Route: 048
  7. CHROMIUM [Concomitant]
     Active Substance: CHROMIC CHLORIDE\CHROMIUM
     Dosage: 200 MICROGRAM
     Route: 048
  8. TELMISARTAN [Concomitant]
     Active Substance: TELMISARTAN
     Dosage: 80 MILLIGRAM
     Route: 048
  9. OXAZEPAM [Concomitant]
     Active Substance: OXAZEPAM
     Dosage: 30 MILLIGRAM
     Route: 048
  10. ATROVENT [Concomitant]
     Active Substance: IPRATROPIUM BROMIDE
     Dosage: 20 MICROGRAM
     Route: 055
  11. SYMBICORT [Concomitant]
     Active Substance: BUDESONIDE\FORMOTEROL FUMARATE DIHYDRATE
     Dosage: 200 MICROGRAM
     Route: 055
  12. XELJANZ [Concomitant]
     Active Substance: TOFACITINIB CITRATE
     Dosage: 5 MILLIGRAM
     Dates: start: 202011
  13. PREDNISONE [Concomitant]
     Active Substance: PREDNISONE
     Dosage: 5 MILLIGRAM
     Route: 048
  14. AZATHIOPRINE [Concomitant]
     Active Substance: AZATHIOPRINE
     Dosage: 50 MILLIGRAM
     Route: 048
  15. Salofalk [Concomitant]
     Dosage: 1000 MILLIGRAM
     Route: 048

REACTIONS (2)
  - Colitis ulcerative [Unknown]
  - Dyschezia [Unknown]
